FAERS Safety Report 17580677 (Version 1)
Quarter: 2020Q1

REPORT INFORMATION
  Report Type: Spontaneous
  Country: US (occurrence: US)
  Receive Date: 20200320
  Receipt Date: 20200320
  Transmission Date: 20200409
  Serious: Yes (Hospitalization)
  Sender: FDA-Public Use
  Company Number: None

PATIENT
  Sex: Male

DRUGS (23)
  1. SEVELAMER [Concomitant]
     Active Substance: SEVELAMER
  2. PREDNISONE. [Concomitant]
     Active Substance: PREDNISONE
  3. NOVOLOG [Concomitant]
     Active Substance: INSULIN ASPART
  4. CARVEDILOL. [Concomitant]
     Active Substance: CARVEDILOL
  5. FERROUS SULF [Concomitant]
     Active Substance: FERROUS SULFATE
  6. AMOX/CLAV [Concomitant]
     Active Substance: AMOXICILLIN\CLAVULANATE POTASSIUM
  7. PROCARDIA [Concomitant]
     Active Substance: NIFEDIPINE
  8. BACTRIM DS [Concomitant]
     Active Substance: SULFAMETHOXAZOLE\TRIMETHOPRIM
  9. VALCYTE [Concomitant]
     Active Substance: VALGANCICLOVIR HYDROCHLORIDE
  10. ENVARSUS XR [Suspect]
     Active Substance: TACROLIMUS
     Indication: RENAL TRANSPLANT
  11. VIRT-PHOS [Concomitant]
  12. GENTAMICIN. [Concomitant]
     Active Substance: GENTAMICIN
  13. FUROSEMIDE. [Concomitant]
     Active Substance: FUROSEMIDE
  14. SYMBICORT [Concomitant]
     Active Substance: BUDESONIDE\FORMOTEROL FUMARATE DIHYDRATE
  15. VENTOLIN HFA AER [Concomitant]
  16. ATORVASTATIN [Concomitant]
     Active Substance: ATORVASTATIN
  17. OMEPRAZOLE. [Concomitant]
     Active Substance: OMEPRAZOLE
  18. POT CL MICRO [Concomitant]
  19. ALBUTEROL BEB [Concomitant]
  20. MYCOPHENOLIC TAB 180MG DR [Suspect]
     Active Substance: MYCOPHENOLIC ACID
     Indication: RENAL TRANSPLANT
     Dosage: ?          OTHER FREQUENCY:9AM AND 5PM;?
     Route: 048
     Dates: start: 20200220
  21. DOXYCL HYC [Concomitant]
  22. HYDROCO/APAP [Concomitant]
     Active Substance: ACETAMINOPHEN\HYDROCODONE
  23. TACROLIMUS. [Concomitant]
     Active Substance: TACROLIMUS

REACTIONS (2)
  - Adverse drug reaction [None]
  - Localised infection [None]
